FAERS Safety Report 13953032 (Version 1)
Quarter: 2017Q3

REPORT INFORMATION
  Report Type: Spontaneous
  Country: US (occurrence: US)
  Receive Date: 20170911
  Receipt Date: 20170911
  Transmission Date: 20171128
  Serious: Yes (Other)
  Sender: FDA-Public Use
  Company Number: US-TEVA-686436USA

PATIENT
  Sex: Male
  Weight: 104.42 kg

DRUGS (1)
  1. FENTANYL. [Suspect]
     Active Substance: FENTANYL
     Indication: PAIN
     Route: 062
     Dates: start: 20160805, end: 20160808

REACTIONS (3)
  - Pharyngeal oedema [Unknown]
  - Pruritus [Unknown]
  - Urticaria [Unknown]
